FAERS Safety Report 18679737 (Version 1)
Quarter: 2020Q4

REPORT INFORMATION
  Report Type: Other
  Country: FR (occurrence: FR)
  Receive Date: 20201230
  Receipt Date: 20201230
  Transmission Date: 20210114
  Serious: Yes (Hospitalization)
  Sender: FDA-Public Use
  Company Number: FR-CADILA HEALTHCARE LIMITED-FR-ZYDUS-059866

PATIENT

DRUGS (5)
  1. VANCOMYCINE [VANCOMYCIN HYDROCHLORIDE] [Suspect]
     Active Substance: VANCOMYCIN HYDROCHLORIDE
     Dosage: 15 MILLIGRAM/KILOGRAM
     Dates: start: 20021004, end: 20021004
  2. VANCOMYCINE [VANCOMYCIN HYDROCHLORIDE] [Suspect]
     Active Substance: VANCOMYCIN HYDROCHLORIDE
     Dosage: 35 MILLIGRAM/KILOGRAM
     Dates: start: 20201004, end: 20201005
  3. METFORMINE [Suspect]
     Active Substance: METFORMIN HYDROCHLORIDE
     Indication: TYPE 2 DIABETES MELLITUS
     Dosage: 2 GRAM
     Route: 048
     Dates: end: 20201006
  4. PERINDOPRIL [Interacting]
     Active Substance: PERINDOPRIL
     Indication: PRODUCT USED FOR UNKNOWN INDICATION
     Dosage: 10 MILLIGRAM
     Route: 048
     Dates: end: 20201006
  5. VANCOMYCINE [VANCOMYCIN HYDROCHLORIDE] [Suspect]
     Active Substance: VANCOMYCIN HYDROCHLORIDE
     Indication: FEBRILE BONE MARROW APLASIA
     Dosage: 45 MILLIGRAM/KILOGRAM
     Route: 042
     Dates: start: 20201003, end: 20201003

REACTIONS (1)
  - Renal tubular necrosis [Recovered/Resolved with Sequelae]

NARRATIVE: CASE EVENT DATE: 20201006
